FAERS Safety Report 17048666 (Version 1)
Quarter: 2019Q4

REPORT INFORMATION
  Report Type: Spontaneous
  Country: IT (occurrence: IT)
  Receive Date: 20191119
  Receipt Date: 20191119
  Transmission Date: 20200122
  Serious: Yes (Other)
  Sender: FDA-Public Use
  Company Number: IT-MYLANLABS-2019M1109702

PATIENT
  Age: 77 Year
  Sex: Female
  Weight: 47 kg

DRUGS (5)
  1. AVASTIN [Suspect]
     Active Substance: BEVACIZUMAB
     Indication: ADENOCARCINOMA OF COLON
     Dosage: 235 MILLIGRAM, CYCLE
     Route: 042
     Dates: start: 20180319
  2. LEVOLEUCOVORIN                     /06682101/ [Concomitant]
     Active Substance: LEVOLEUCOVORIN
     Indication: ADENOCARCINOMA OF COLON
     Dosage: 225 MILLIGRAM
     Route: 042
     Dates: start: 20180319, end: 20180704
  3. OXALIPLATIN MYLAN [Suspect]
     Active Substance: OXALIPLATIN
     Indication: ADENOCARCINOMA OF COLON
     Dosage: 97 MILLIGRAM, CYCLE
     Route: 042
     Dates: start: 20180319
  4. FLUOROURACIL. [Suspect]
     Active Substance: FLUOROURACIL
     Indication: ADENOCARCINOMA OF COLON
     Dosage: 450 MILLIGRAM, CYCLE
     Route: 040
     Dates: start: 20180319
  5. FLUOROURACIL. [Suspect]
     Active Substance: FLUOROURACIL
     Dosage: 2740 MILLIGRAM, CYCLE
     Route: 042
     Dates: start: 20180319

REACTIONS (2)
  - Blood thyroid stimulating hormone increased [Recovering/Resolving]
  - Neutropenia [Recovering/Resolving]

NARRATIVE: CASE EVENT DATE: 20180525
